FAERS Safety Report 17968474 (Version 3)
Quarter: 2020Q4

REPORT INFORMATION
  Report Type: Report from Study
  Country: US (occurrence: US)
  Receive Date: 20200701
  Receipt Date: 20201214
  Transmission Date: 20210113
  Serious: Yes (Death, Other)
  Sender: FDA-Public Use
  Company Number: US-ASTELLAS-2020US019260

PATIENT
  Age: 84 Year
  Sex: Male
  Weight: 64 kg

DRUGS (4)
  1. LUPRON [Concomitant]
     Active Substance: LEUPROLIDE ACETATE
     Indication: PROSTATE CANCER
     Dosage: UNK UNK, UNKNOWN FREQ.
     Route: 065
  2. XGEVA [Concomitant]
     Active Substance: DENOSUMAB
     Indication: METASTASES TO BONE
     Dosage: UNK UNK, UNKNOWN FREQ.
     Route: 065
  3. ENZALUTAMIDE [Suspect]
     Active Substance: ENZALUTAMIDE
     Indication: PROSTATE CANCER
     Route: 048
     Dates: start: 20191223, end: 20200501
  4. ENZALUTAMIDE [Suspect]
     Active Substance: ENZALUTAMIDE
     Route: 048
     Dates: start: 20200501, end: 202008

REACTIONS (12)
  - Malignant neoplasm progression [Fatal]
  - Constipation [Recovering/Resolving]
  - Neuropathy peripheral [Unknown]
  - Fatigue [Recovering/Resolving]
  - Neoplasm [Recovering/Resolving]
  - Decreased appetite [Not Recovered/Not Resolved]
  - Cauda equina syndrome [Recovering/Resolving]
  - Nausea [Recovering/Resolving]
  - Iron deficiency anaemia [Unknown]
  - Vomiting [Recovering/Resolving]
  - Prostatic specific antigen increased [Not Recovered/Not Resolved]
  - Hypoaesthesia [Not Recovered/Not Resolved]

NARRATIVE: CASE EVENT DATE: 202004
